FAERS Safety Report 11143074 (Version 2)
Quarter: 2015Q2

REPORT INFORMATION
  Report Type: Spontaneous
  Country: JP (occurrence: JP)
  Receive Date: 20150526
  Receipt Date: 20150610
  Transmission Date: 20150821
  Serious: Yes (Death)
  Sender: FDA-Public Use
  Company Number: JP-ROCHE-1582213

PATIENT
  Age: 61 Year
  Sex: Male
  Weight: 66 kg

DRUGS (14)
  1. AVASTIN [Suspect]
     Active Substance: BEVACIZUMAB
     Indication: RECTOSIGMOID CANCER METASTATIC
     Route: 041
     Dates: start: 20150430, end: 20150430
  2. MAGCOROL P [Concomitant]
     Indication: BOWEL PREPARATION
     Route: 048
     Dates: start: 20150422, end: 20150422
  3. ELPLAT [Suspect]
     Active Substance: OXALIPLATIN
     Indication: RECTOSIGMOID CANCER METASTATIC
     Dosage: DOSAGE IS UNCERTAIN.
     Route: 041
     Dates: start: 20150430, end: 20150430
  4. DEXART [Concomitant]
     Active Substance: DEXAMETHASONE SODIUM PHOSPHATE
     Dosage: DOSAGE IS UNCERTAIN.
     Route: 041
     Dates: start: 20150430, end: 20150430
  5. GLACTIV [Concomitant]
     Active Substance: SITAGLIPTIN
     Indication: DIABETES MELLITUS
     Dosage: DOSAGE IS UNCERTAIN.
     Route: 048
     Dates: start: 20150506, end: 20150506
  6. DEXART [Concomitant]
     Active Substance: DEXAMETHASONE SODIUM PHOSPHATE
     Indication: RECTOSIGMOID CANCER
     Dosage: DOSAGE IS UNCERTAIN.
     Route: 041
     Dates: start: 20150430, end: 20150430
  7. DECADRON [Concomitant]
     Active Substance: DEXAMETHASONE
     Indication: RECTOSIGMOID CANCER
     Dosage: DOSAGE IS UNCERTAIN.
     Route: 048
     Dates: start: 20150501, end: 20150502
  8. EMEND [Concomitant]
     Active Substance: APREPITANT
     Dosage: DOSAGE IS UNCERTAIN.
     Route: 065
     Dates: start: 20150430, end: 20150502
  9. GASMOTIN [Concomitant]
     Active Substance: MOSAPRIDE CITRATE
     Indication: BOWEL PREPARATION
     Route: 048
     Dates: start: 20150422, end: 20150422
  10. XELODA [Suspect]
     Active Substance: CAPECITABINE
     Indication: RECTOSIGMOID CANCER METASTATIC
     Route: 048
     Dates: start: 20150430, end: 20150507
  11. ALOXI [Concomitant]
     Active Substance: PALONOSETRON HYDROCHLORIDE
     Indication: RECTOSIGMOID CANCER
     Dosage: DOSAGE IS UNCERTAIN.
     Route: 041
     Dates: start: 20150430, end: 20150430
  12. GLYCERIN. [Concomitant]
     Active Substance: GLYCERIN
     Indication: BOWEL PREPARATION
     Route: 054
     Dates: start: 20150415, end: 20150415
  13. GLYCERIN. [Concomitant]
     Active Substance: GLYCERIN
     Indication: BOWEL PREPARATION
     Route: 054
     Dates: start: 20150427, end: 20150427
  14. PICOSULFATE [Concomitant]
     Active Substance: SODIUM PICOSULFATE
     Indication: BOWEL PREPARATION
     Dosage: DRUG REPORTED AS PICOSULFATE NA
     Route: 048
     Dates: start: 20150422, end: 20150422

REACTIONS (1)
  - Myocarditis [Fatal]

NARRATIVE: CASE EVENT DATE: 20150506
